FAERS Safety Report 7358547-4 (Version None)
Quarter: 2011Q1

REPORT INFORMATION
  Report Type: 
  Country: None (occurrence: None)
  Receive Date: 20110317
  Receipt Date: 20110308
  Transmission Date: 20110831
  Serious: Yes (Hospitalization, Other)
  Sender: FDA-Public Use
  Company Number: DE-NOVOPROD-317839

PATIENT
  Sex: Male
  Weight: 35.4 kg

DRUGS (1)
  1. NORDITROPIN [Suspect]
     Indication: GROWTH HORMONE DEFICIENCY
     Dosage: 1.8 MG, QD
     Route: 058
     Dates: start: 20070323, end: 20100923

REACTIONS (3)
  - HYPOTENSION [None]
  - ABDOMINAL DISTENSION [None]
  - NIGHT SWEATS [None]
